FAERS Safety Report 4932161-X (Version None)
Quarter: 2006Q1

REPORT INFORMATION
  Report Type: 
  Country: None (occurrence: None)
  Receive Date: 20060303
  Receipt Date: 20060221
  Transmission Date: 20060701
  Serious: Yes (Death, Hospitalization)
  Sender: FDA-Public Use
  Company Number: US-SANOFI-SYNTHELABO-A03200600986

PATIENT
  Sex: Female
  Weight: 68.03 kg

DRUGS (1)
  1. PLAVIX [Suspect]
     Indication: VASCULAR BYPASS GRAFT
     Route: 048
     Dates: start: 20010101

REACTIONS (5)
  - DIVERTICULITIS [None]
  - GASTROINTESTINAL INFECTION [None]
  - HEART RATE INCREASED [None]
  - HYPOTENSION [None]
  - URINARY TRACT INFECTION [None]
